FAERS Safety Report 8932861 (Version 3)
Quarter: 2014Q1

REPORT INFORMATION
  Report Type: Spontaneous
  Country: US (occurrence: US)
  Receive Date: 20121129
  Receipt Date: 20140206
  Transmission Date: 20141002
  Serious: Yes (Other)
  Sender: FDA-Public Use
  Company Number: US-BAYER-2012-125063

PATIENT
  Age: 28 Year
  Sex: Female

DRUGS (4)
  1. YAZ [Suspect]
     Dosage: UNK
  2. YASMIN [Suspect]
  3. OCELLA [Suspect]
  4. NEXIUM [Concomitant]
     Dosage: 40 MG, UNK
     Dates: start: 20060210, end: 20060403

REACTIONS (6)
  - Cholecystectomy [None]
  - Cholelithiasis [None]
  - Injury [None]
  - Pain [None]
  - Emotional distress [None]
  - Pain [None]
